FAERS Safety Report 6106883-1 (Version None)
Quarter: 2009Q1

REPORT INFORMATION
  Report Type: 
  Country: None (occurrence: None)
  Receive Date: 20090303
  Receipt Date: 20090225
  Transmission Date: 20090719
  Serious: Yes (Death, Hospitalization, Other)
  Sender: FDA-Public Use
  Company Number: 2007JP001176

PATIENT
  Age: 29 Year
  Sex: Female
  Weight: 58.1 kg

DRUGS (10)
  1. PROGRAF [Suspect]
     Indication: STEM CELL TRANSPLANT
     Dosage: 0.03 MG/KG, CONTINUOUS, IV DRIP
     Route: 041
     Dates: start: 20030120, end: 20030301
  2. OXACILLIN SODIUM [Suspect]
     Indication: BACTERIAL INFECTION
     Dosage: 0.5 G, BID, IV DRIP
     Route: 041
     Dates: start: 20030225, end: 20030317
  3. SANDIMMUNE [Suspect]
     Indication: STEM CELL TRANSPLANT
     Dosage: 100 MG, CONTINUOUS, IV DRIP
     Route: 041
     Dates: start: 20030325, end: 20030406
  4. DENOSINE (GANCICLOVIR) INJECTION [Concomitant]
  5. DIFLUCAN (FLUCONAZOLE) PER ORAL NOS [Concomitant]
  6. PREDNISOLONE [Concomitant]
  7. DOPAMINE (DOPAMINE) INJECTION [Concomitant]
  8. LASIX (FUROSEMIDE) INJECTION [Concomitant]
  9. OMEPRAL INJECTION [Concomitant]
  10. METHOTREXATE FORMULATION UNKNOWN [Concomitant]

REACTIONS (12)
  - ACUTE GRAFT VERSUS HOST DISEASE [None]
  - BACTERIAL INFECTION [None]
  - BLOOD CREATININE INCREASED [None]
  - CONVULSION [None]
  - CYTOMEGALOVIRUS INFECTION [None]
  - DIPLOPIA [None]
  - GASTROINTESTINAL HAEMORRHAGE [None]
  - HEADACHE [None]
  - RENAL IMPAIRMENT [None]
  - REVERSIBLE POSTERIOR LEUKOENCEPHALOPATHY SYNDROME [None]
  - SHOCK HAEMORRHAGIC [None]
  - THROMBOTIC MICROANGIOPATHY [None]
